FAERS Safety Report 6058370-7 (Version None)
Quarter: 2009Q1

REPORT INFORMATION
  Report Type: 
  Country: None (occurrence: None)
  Receive Date: 20090127
  Receipt Date: 20090116
  Transmission Date: 20090719
  Serious: Yes (Hospitalization)
  Sender: FDA-Public Use
  Company Number: FR-2009-0107

PATIENT
  Age: 72 Year
  Sex: Female

DRUGS (2)
  1. NAVELBINE [Suspect]
     Indication: BREAST CANCER
  2. HERCEPTIN [Suspect]
     Indication: BREAST CANCER
     Dosage: 150 MG IV
     Route: 042

REACTIONS (4)
  - CARDIOMYOPATHY [None]
  - EJECTION FRACTION DECREASED [None]
  - METASTASIS [None]
  - PLEURAL EFFUSION [None]
